FAERS Safety Report 8919422 (Version 1)
Quarter: 2012Q4

REPORT INFORMATION
  Report Type: 
  Country: US (occurrence: US)
  Receive Date: 20121121
  Receipt Date: 20121121
  Transmission Date: 20130627
  Serious: No
  Sender: FDA-Public Use
  Company Number: US-PFIZER INC-2012288736

PATIENT
  Age: 42 Year
  Sex: Female

DRUGS (1)
  1. INLYTA [Suspect]
     Indication: KIDNEY CANCER
     Dosage: 5 mg, UNK

REACTIONS (2)
  - Disease progression [Unknown]
  - Renal cancer [Unknown]
